FAERS Safety Report 8142413-0 (Version None)
Quarter: 2012Q1

REPORT INFORMATION
  Report Type: 
  Country: None (occurrence: None)
  Receive Date: 20120216
  Receipt Date: 20120208
  Transmission Date: 20120608
  Serious: Yes (Hospitalization)
  Sender: FDA-Public Use
  Company Number: AU-JNJFOC-20111111464

PATIENT
  Sex: Male

DRUGS (3)
  1. CLOPIXOL [Concomitant]
     Indication: SCHIZOPHRENIA
  2. PALIPERIDONE PALMITATE [Suspect]
     Indication: SCHIZOPHRENIA
     Route: 030
     Dates: start: 20110323, end: 20111116
  3. OLANZAPINE [Concomitant]
     Indication: SCHIZOPHRENIA

REACTIONS (1)
  - PSYCHOTIC DISORDER [None]
